FAERS Safety Report 8738281 (Version 2)
Quarter: 2013Q4

REPORT INFORMATION
  Report Type: Spontaneous
  Country: ES (occurrence: ES)
  Receive Date: 20120823
  Receipt Date: 20131003
  Transmission Date: 20140711
  Serious: Yes (Other)
  Sender: FDA-Public Use
  Company Number: ES-009507513-1208ESP004261

PATIENT
  Age: 41 Year
  Sex: Female

DRUGS (1)
  1. MAXALT MAX 10 MG [Suspect]
     Indication: MIGRAINE
     Dosage: UNK
     Route: 048
     Dates: end: 20120806

REACTIONS (2)
  - Swollen tongue [Recovered/Resolved]
  - Tongue pruritus [Recovered/Resolved]
